FAERS Safety Report 4508342-6 (Version None)
Quarter: 2004Q4

REPORT INFORMATION
  Report Type: 
  Country: None (occurrence: None)
  Receive Date: 20041123
  Receipt Date: 20040113
  Transmission Date: 20050328
  Serious: No
  Sender: FDA-Public Use
  Company Number: US-GLAXOSMITHKLINE-A0492886A

PATIENT
  Age: 39 Year
  Sex: Female

DRUGS (2)
  1. WELLBUTRIN SR [Suspect]
     Indication: POSTPARTUM DEPRESSION
     Dosage: 150MG PER DAY
     Route: 048
     Dates: start: 20020401, end: 20030801
  2. KLONOPIN [Suspect]
     Indication: SLEEP DISORDER
     Dosage: 3MG PER DAY
     Dates: start: 20020401

REACTIONS (7)
  - DRUG WITHDRAWAL SYNDROME [None]
  - HEADACHE [None]
  - INSOMNIA [None]
  - NAUSEA [None]
  - PALPITATIONS [None]
  - TREMOR [None]
  - WEIGHT DECREASED [None]
